FAERS Safety Report 11081711 (Version 4)
Quarter: 2016Q3

REPORT INFORMATION
  Report Type: Spontaneous
  Country: US (occurrence: US)
  Receive Date: 20150501
  Receipt Date: 20160927
  Transmission Date: 20161109
  Serious: Yes (Hospitalization, Other)
  Sender: FDA-Public Use
  Company Number: US-009507513-1504USA023213

PATIENT
  Sex: Female

DRUGS (2)
  1. FOSAMAX [Suspect]
     Active Substance: ALENDRONATE SODIUM
     Indication: OSTEOPOROSIS
     Dosage: 70 MG, QW
     Route: 048
     Dates: start: 1995, end: 200911
  2. ALENDRONATE SODIUM. [Suspect]
     Active Substance: ALENDRONATE SODIUM
     Indication: OSTEOPOROSIS
     Dosage: 70 MG, QW
     Route: 048
     Dates: start: 200912, end: 201112

REACTIONS (27)
  - Fall [Unknown]
  - Spinal compression fracture [Unknown]
  - Cataract [Unknown]
  - Shoulder arthroplasty [Unknown]
  - Patella fracture [Unknown]
  - Fall [Unknown]
  - Fall [Unknown]
  - Lung hyperinflation [Unknown]
  - Spinal compression fracture [Recovering/Resolving]
  - Thrombosis [Unknown]
  - Upper limb fracture [Unknown]
  - Spinal compression fracture [Unknown]
  - Impaired healing [Unknown]
  - Wrist fracture [Unknown]
  - Arthritis [Unknown]
  - Balance disorder [Unknown]
  - Osteoporosis [Unknown]
  - Spinal operation [Unknown]
  - Medical device removal [Unknown]
  - Femur fracture [Unknown]
  - Spinal osteoarthritis [Unknown]
  - Blood cholesterol increased [Unknown]
  - Bunion operation [Unknown]
  - Tonsillectomy [Unknown]
  - Rheumatoid arthritis [Unknown]
  - Appendicectomy [Unknown]
  - Medical device removal [Unknown]

NARRATIVE: CASE EVENT DATE: 2005
